FAERS Safety Report 8250213-6 (Version None)
Quarter: 2012Q2

REPORT INFORMATION
  Report Type: 
  Country: None (occurrence: None)
  Receive Date: 20120402
  Receipt Date: 20120327
  Transmission Date: 20120825
  Serious: Yes (Hospitalization, Other)
  Sender: FDA-Public Use
  Company Number: PHEH2012US006026

PATIENT
  Sex: Male
  Weight: 99.2 kg

DRUGS (8)
  1. CLOZAPINE [Suspect]
     Indication: SCHIZOPHRENIA
     Dosage: UNK UKN, UNK
     Dates: start: 20110708
  2. GEODON [Concomitant]
     Indication: SCHIZOPHRENIA
     Dosage: 80 MG, BID
     Route: 048
     Dates: end: 20120308
  3. BENZTROPINE MESYLATE [Concomitant]
     Dosage: UNK UKN, UNK
  4. BENZTROPINE MESYLATE [Concomitant]
     Indication: SCHIZOPHRENIA
     Dosage: 0.5 MG, BID
     Route: 048
     Dates: end: 20120308
  5. HALOPERIDOL [Concomitant]
     Indication: SCHIZOPHRENIA
     Dosage: 5 MG, TID
     Route: 048
     Dates: end: 20120308
  6. CLOZAPINE [Suspect]
     Dosage: 25 MG, BID
     Route: 048
     Dates: start: 20120229, end: 20120308
  7. VALPROIC ACID [Concomitant]
     Indication: SCHIZOPHRENIA
     Dosage: 1000 MG/ 24HRS
     Route: 048
     Dates: end: 20120308
  8. HALOPERIDOL [Concomitant]
     Dosage: UNK UKN, PRN

REACTIONS (17)
  - ANAEMIA [None]
  - HAEMOGLOBIN DECREASED [None]
  - EOSINOPHIL COUNT INCREASED [None]
  - LYMPHOPENIA [None]
  - TACHYCARDIA [None]
  - VOMITING [None]
  - BLOOD CREATININE INCREASED [None]
  - EJECTION FRACTION DECREASED [None]
  - MYOCARDITIS [None]
  - HAEMATOCRIT DECREASED [None]
  - NAUSEA [None]
  - DIARRHOEA [None]
  - RENAL FAILURE [None]
  - BLOOD UREA INCREASED [None]
  - RED BLOOD CELL COUNT DECREASED [None]
  - PYREXIA [None]
  - AGRANULOCYTOSIS [None]
